FAERS Safety Report 26213888 (Version 1)
Quarter: 2025Q4

REPORT INFORMATION
  Report Type: Spontaneous
  Country: US (occurrence: US)
  Receive Date: 20251230
  Receipt Date: 20251230
  Transmission Date: 20260117
  Serious: Yes (Hospitalization)
  Sender: MYLAN
  Company Number: US-MYLANLABS-2025M1111247

PATIENT
  Age: 37 Year
  Sex: Female

DRUGS (2)
  1. LEVETIRACETAM [Suspect]
     Active Substance: LEVETIRACETAM
     Indication: Encephalopathy
     Dosage: UNK
  2. LORAZEPAM [Suspect]
     Active Substance: LORAZEPAM
     Indication: Encephalopathy
     Dosage: UNK

REACTIONS (1)
  - Therapy non-responder [Unknown]
